FAERS Safety Report 18375376 (Version 1)
Quarter: 2020Q4

REPORT INFORMATION
  Report Type: Spontaneous
  Country: ES (occurrence: ES)
  Receive Date: 20201012
  Receipt Date: 20201012
  Transmission Date: 20210114
  Serious: Yes (Hospitalization, Other)
  Sender: FDA-Public Use
  Company Number: ES-AUROBINDO-AUR-APL-2020-051504

PATIENT
  Age: 76 Year
  Sex: Male

DRUGS (4)
  1. CIPROFLOXACIN. [Suspect]
     Active Substance: CIPROFLOXACIN
     Indication: DIABETIC FOOT INFECTION
     Dosage: 500 MILLIGRAM, ONCE A DAY (500 MG DIA)
     Route: 048
     Dates: start: 20200216, end: 20200428
  2. AMOXICILLIN+CLAVULANIC ACID [Suspect]
     Active Substance: AMOXICILLIN\CLAVULANIC ACID
     Indication: DIABETIC FOOT INFECTION
     Dosage: 1 DOSAGE FORM, 3 TIMES A DAY (1-1-1)
     Route: 048
     Dates: start: 20200216, end: 20200428
  3. IBUPROFEN. [Suspect]
     Active Substance: IBUPROFEN
     Indication: PAIN
     Dosage: 600 MILLIGRAM, 3 TIMES A DAY 600 MILLIGRAM (600MG (1-1-1)
     Route: 048
     Dates: start: 20200328, end: 20200428
  4. METAMIZOLE [Suspect]
     Active Substance: METAMIZOLE
     Indication: PAIN
     Dosage: 575 MILLIGRAM, 3 TIMES A DAY, (575 MG (1-1-1)
     Route: 048
     Dates: start: 20200216, end: 20200328

REACTIONS (1)
  - Acute kidney injury [Recovered/Resolved]

NARRATIVE: CASE EVENT DATE: 20200428
